FAERS Safety Report 4745941-0 (Version None)
Quarter: 2005Q3

REPORT INFORMATION
  Report Type: 
  Country: None (occurrence: None)
  Receive Date: 20050816
  Receipt Date: 20050120
  Transmission Date: 20060218
  Serious: Yes (Disabling, Other)
  Sender: FDA-Public Use
  Company Number: IE-GLAXOSMITHKLINE-B0389861A

PATIENT
  Age: 35 Year
  Sex: Female

DRUGS (1)
  1. ZOFRAN [Suspect]
     Indication: DRUG USE FOR UNKNOWN INDICATION
     Dosage: 2MGML UNKNOWN
     Route: 065

REACTIONS (8)
  - ACCIDENTAL EXPOSURE [None]
  - DISCOMFORT [None]
  - EYE DISORDER [None]
  - EYE PENETRATION [None]
  - FOREIGN BODY IN EYE [None]
  - MEDICATION ERROR [None]
  - PAIN [None]
  - PHARMACEUTICAL PRODUCT COMPLAINT [None]
